FAERS Safety Report 22349617 (Version 1)
Quarter: 2023Q2

REPORT INFORMATION
  Report Type: Spontaneous
  Country: NL (occurrence: NL)
  Receive Date: 20230522
  Receipt Date: 20230522
  Transmission Date: 20230722
  Serious: Yes (Other)
  Sender: FDA-Public Use
  Company Number: NL-MACLEODS PHARMACEUTICALS US LTD-MAC2023041407

PATIENT

DRUGS (4)
  1. TENOFOVIR DISOPROXIL [Suspect]
     Active Substance: TENOFOVIR DISOPROXIL
     Indication: Antiretroviral therapy
     Dosage: 300 MILLIGRAM, QD
     Route: 065
  2. LAMIVUDINE [Concomitant]
     Active Substance: LAMIVUDINE
     Indication: Antiretroviral therapy
     Dosage: 300 MILLIGRAM, QD
     Route: 065
  3. DELAVIRDINE [Concomitant]
     Active Substance: DELAVIRDINE
     Indication: Antiretroviral therapy
     Dosage: 400 MILLIGRAM, TID
     Route: 065
  4. FOSAMPRENAVIR\RITONAVIR [Concomitant]
     Active Substance: FOSAMPRENAVIR\RITONAVIR
     Indication: Antiretroviral therapy
     Dosage: UNK, BID (700/100 MG)
     Route: 065

REACTIONS (4)
  - Stress fracture [Recovered/Resolved]
  - Toxicity to various agents [Unknown]
  - Fanconi syndrome [Recovered/Resolved]
  - Osteomalacia [Recovered/Resolved]
